FAERS Safety Report 5670711-9 (Version None)
Quarter: 2008Q1

REPORT INFORMATION
  Report Type: 
  Country: None (occurrence: None)
  Receive Date: 20080312
  Receipt Date: 20080301
  Transmission Date: 20080703
  Serious: Yes (Other)
  Sender: FDA-Public Use
  Company Number: CHPA2008US03905

PATIENT
  Age: 84 Year
  Sex: Female

DRUGS (4)
  1. THERAFLU FLU AND SORE THROAT (NCH)(PHENIRAMINE MALEATE, PHENYLEPHRINE [Suspect]
     Indication: NASOPHARYNGITIS
     Dosage: 1 DF, ONCE/SINGE, ORAL
     Route: 048
     Dates: start: 20080229
  2. ^NYQUIL^ (NYQUIL) [Suspect]
     Dates: start: 20080229
  3. ALLERGY MEDICATION(NO INGREDIENTS/SUBSTANCES) [Suspect]
     Dates: start: 20080301
  4. MUCINEX [Suspect]
     Dates: start: 20080301

REACTIONS (2)
  - DYSARTHRIA [None]
  - SWOLLEN TONGUE [None]
